FAERS Safety Report 7777394-2 (Version None)
Quarter: 2011Q3

REPORT INFORMATION
  Report Type: 
  Country: None (occurrence: None)
  Receive Date: 20110926
  Receipt Date: 20110913
  Transmission Date: 20111222
  Serious: Yes (Hospitalization)
  Sender: FDA-Public Use
  Company Number: US-BAYER-2011-020061

PATIENT
  Age: 29 Year
  Sex: Female
  Weight: 53.515 kg

DRUGS (7)
  1. YAZ [Suspect]
     Indication: ORAL CONTRACEPTION
     Dosage: UNK
     Dates: start: 20071103, end: 20100220
  2. YASMIN [Suspect]
     Indication: ORAL CONTRACEPTION
     Dosage: UNK
     Dates: start: 20041112, end: 20071010
  3. PROTONIX [Concomitant]
     Indication: DYSPEPSIA
  4. METOCLOPRAMIDE [Concomitant]
     Indication: PROPHYLAXIS OF NAUSEA AND VOMITING
     Dosage: UNK
     Dates: start: 20090301
  5. PROTONIX [Concomitant]
     Indication: GASTROOESOPHAGEAL REFLUX DISEASE
  6. PANTOPRAZOLE [Concomitant]
     Indication: GASTRIC PH DECREASED
     Dosage: UNK
     Dates: start: 20090101
  7. PROTONIX [Concomitant]

REACTIONS (6)
  - ABDOMINAL PAIN [None]
  - INJURY [None]
  - CHOLELITHIASIS [None]
  - PAIN [None]
  - CHOLECYSTITIS CHRONIC [None]
  - CHOLECYSTITIS [None]
